FAERS Safety Report 10075437 (Version 2)
Quarter: 2014Q2

REPORT INFORMATION
  Report Type: Spontaneous
  Country: US (occurrence: None)
  Receive Date: 20140318
  Receipt Date: 20140418
  Transmission Date: 20141212
  Serious: Yes (Other)
  Sender: FDA-Public Use
  Company Number: ADR-2013-00608

PATIENT
  Sex: Female

DRUGS (1)
  1. LIORESAL [Suspect]
     Indication: MUSCLE SPASTICITY
     Dosage: 40.28 MCG/DAY

REACTIONS (19)
  - Muscular weakness [None]
  - Drug ineffective [None]
  - Medical device discomfort [None]
  - Peroneal nerve palsy [None]
  - Mobility decreased [None]
  - Device malfunction [None]
  - Device infusion issue [None]
  - Medical device complication [None]
  - Dysstasia [None]
  - Balance disorder [None]
  - Musculoskeletal stiffness [None]
  - Post procedural complication [None]
  - Procedural pain [None]
  - Muscle contracture [None]
  - Abasia [None]
  - Spinal cord disorder [None]
  - Iatrogenic injury [None]
  - Mass [None]
  - General physical health deterioration [None]
